FAERS Safety Report 10473426 (Version 1)
Quarter: 2014Q3

REPORT INFORMATION
  Report Type: Spontaneous
  Country: US (occurrence: US)
  Receive Date: 20140924
  Receipt Date: 20140924
  Transmission Date: 20150326
  Serious: No
  Sender: FDA-Public Use
  Company Number: US-EISAI MEDICAL RESEARCH-EC-2014-000130

PATIENT
  Age: 68 Year
  Sex: Female
  Weight: 47 kg

DRUGS (6)
  1. ZONEGRAN [Concomitant]
     Active Substance: ZONISAMIDE
     Indication: GENERALISED TONIC-CLONIC SEIZURE
     Route: 048
  2. KEPPRA [Concomitant]
     Active Substance: LEVETIRACETAM
     Indication: GENERALISED TONIC-CLONIC SEIZURE
     Route: 048
  3. FYCOMPA [Suspect]
     Active Substance: PERAMPANEL
     Route: 048
     Dates: start: 201408, end: 20140915
  4. FYCOMPA [Suspect]
     Active Substance: PERAMPANEL
     Route: 048
     Dates: start: 201408, end: 201408
  5. FYCOMPA [Suspect]
     Active Substance: PERAMPANEL
     Route: 048
     Dates: start: 201408, end: 201408
  6. FYCOMPA [Suspect]
     Active Substance: PERAMPANEL
     Indication: GENERALISED TONIC-CLONIC SEIZURE
     Route: 048
     Dates: start: 201408, end: 201408

REACTIONS (5)
  - Asthenia [Not Recovered/Not Resolved]
  - Dizziness [Not Recovered/Not Resolved]
  - Abnormal dreams [Not Recovered/Not Resolved]
  - Gait disturbance [Not Recovered/Not Resolved]
  - Memory impairment [Not Recovered/Not Resolved]

NARRATIVE: CASE EVENT DATE: 201409
